FAERS Safety Report 4620874-9 (Version None)
Quarter: 2005Q1

REPORT INFORMATION
  Report Type: 
  Country: None (occurrence: None)
  Receive Date: 20050325
  Receipt Date: 20050317
  Transmission Date: 20050727
  Serious: Yes (Hospitalization)
  Sender: FDA-Public Use
  Company Number: TPG2005A00057

PATIENT
  Age: 25 Year
  Sex: Female

DRUGS (4)
  1. ACTOS [Suspect]
     Indication: DIABETES MELLITUS
     Dosage: 45 MG (1 IN 1 D)
     Route: 048
     Dates: start: 20040501, end: 20040812
  2. METFORMIN HYDROCHLORIDE [Concomitant]
  3. BISOPROLOL FUMARATE [Concomitant]
  4. LEVOTHYROXINE SODIUM [Concomitant]

REACTIONS (7)
  - CAESAREAN SECTION [None]
  - DRUG EXPOSURE DURING PREGNANCY [None]
  - HYPERSENSITIVITY [None]
  - PLACENTAL INSUFFICIENCY [None]
  - POSTPARTUM HAEMORRHAGE [None]
  - PREGNANCY [None]
  - PREMATURE LABOUR [None]
